FAERS Safety Report 25551404 (Version 2)
Quarter: 2025Q3

REPORT INFORMATION
  Report Type: Report from Study
  Country: IN (occurrence: IN)
  Receive Date: 20250714
  Receipt Date: 20250722
  Transmission Date: 20251021
  Serious: Yes (Hospitalization, Other)
  Sender: NOVARTIS
  Company Number: IN-002147023-NVSC2025IN111109

PATIENT
  Sex: Female

DRUGS (3)
  1. RIBOCICLIB [Suspect]
     Active Substance: RIBOCICLIB
     Indication: Breast cancer metastatic
     Route: 065
     Dates: start: 20250629
  2. RIBOCICLIB [Suspect]
     Active Substance: RIBOCICLIB
     Indication: Breast cancer
     Dosage: 600 MG, QD
     Route: 048
     Dates: start: 20250630
  3. LETROZOLE [Suspect]
     Active Substance: LETROZOLE
     Indication: Product used for unknown indication
     Route: 065
     Dates: start: 20250629

REACTIONS (21)
  - Weight decreased [Unknown]
  - Decreased appetite [Unknown]
  - Dry mouth [Unknown]
  - Fatigue [Unknown]
  - Hypophagia [Unknown]
  - Metastases to liver [Unknown]
  - Metastases to bone [Unknown]
  - Blood parathyroid hormone abnormal [Unknown]
  - Hypercalcaemia of malignancy [Unknown]
  - Vitamin D abnormal [Unknown]
  - Echocardiogram abnormal [Unknown]
  - Blood creatine abnormal [Unknown]
  - Blood potassium abnormal [Unknown]
  - Blood albumin abnormal [Unknown]
  - Breast mass [Unknown]
  - Aspartate aminotransferase abnormal [Unknown]
  - Alanine aminotransferase abnormal [Unknown]
  - Ejection fraction abnormal [Unknown]
  - Pulmonary mass [Unknown]
  - Bone lesion [Unknown]
  - Hypercalcaemia [Unknown]
